FAERS Safety Report 15857496 (Version 1)
Quarter: 2018Q4

REPORT INFORMATION
  Report Type: Spontaneous
  Country: US (occurrence: US)
  Receive Date: 20181228
  Receipt Date: 20181228
  Transmission Date: 20190205
  Serious: No
  Sender: FDA-Public Use
  Company Number: None

PATIENT
  Age: 67 Year

DRUGS (1)
  1. EPCLUSA [Suspect]
     Active Substance: SOFOSBUVIR\VELPATASVIR
     Dates: start: 20181206

REACTIONS (3)
  - Fatigue [None]
  - Gastrooesophageal reflux disease [None]
  - Headache [None]

NARRATIVE: CASE EVENT DATE: 20181227
